FAERS Safety Report 23263897 (Version 1)
Quarter: 2023Q4

REPORT INFORMATION
  Report Type: Spontaneous
  Country: KR (occurrence: KR)
  Receive Date: 20231205
  Receipt Date: 20231205
  Transmission Date: 20240109
  Serious: Yes (Other)
  Sender: FDA-Public Use
  Company Number: KR-UCBSA-2023056752

PATIENT
  Sex: Male
  Weight: 80 kg

DRUGS (2)
  1. KEPPRA [Suspect]
     Active Substance: LEVETIRACETAM
     Indication: Brain abscess
     Dosage: 1000 MILLIGRAM,12 HOURS
     Dates: start: 20220421, end: 20220509
  2. KEPPRA [Suspect]
     Active Substance: LEVETIRACETAM
     Indication: Off label use

REACTIONS (2)
  - Aspartate aminotransferase increased [Recovering/Resolving]
  - Off label use [Unknown]

NARRATIVE: CASE EVENT DATE: 20220421
